FAERS Safety Report 25627880 (Version 1)
Quarter: 2025Q3

REPORT INFORMATION
  Report Type: Spontaneous
  Country: US (occurrence: None)
  Receive Date: 20250731
  Receipt Date: 20250731
  Transmission Date: 20251020
  Serious: Yes (unspecified)
  Sender: FDA-CTU
  Company Number: None

PATIENT
  Age: 49 Year
  Sex: Female
  Weight: 72 kg

DRUGS (8)
  1. IMVEXXY [Suspect]
     Active Substance: ESTRADIOL
     Indication: Atrophic vulvovaginitis
     Dosage: 18 INSERTS DAILY VAGINAL
     Route: 067
     Dates: start: 20250725, end: 20250727
  2. Low dose naltrexone 6mg [Concomitant]
  3. FISH OIL [Concomitant]
     Active Substance: FISH OIL
  4. mitopure vitamin [Concomitant]
  5. b12 [Concomitant]
  6. PROBIOTICS NOS [Concomitant]
     Active Substance: PROBIOTICS NOS
  7. MAGNESIUM [Concomitant]
     Active Substance: MAGNESIUM
  8. oral progesterone [Concomitant]

REACTIONS (2)
  - Application site hypersensitivity [None]
  - Diarrhoea [None]

NARRATIVE: CASE EVENT DATE: 20250727
